FAERS Safety Report 18815807 (Version 1)
Quarter: 2021Q1

REPORT INFORMATION
  Report Type: Spontaneous
  Country: US (occurrence: US)
  Receive Date: 20210130
  Receipt Date: 20210130
  Transmission Date: 20210419
  Serious: Yes (Hospitalization)
  Sender: FDA-Public Use
  Company Number: None

PATIENT
  Age: 59 Year
  Sex: Female
  Weight: 93.8 kg

DRUGS (7)
  1. LEVOTHYROXINE. [Concomitant]
     Active Substance: LEVOTHYROXINE
  2. OLANZAPINE. [Concomitant]
     Active Substance: OLANZAPINE
  3. TAXOL [Suspect]
     Active Substance: PACLITAXEL
     Dates: end: 20200415
  4. TYLENOL WITH CODEINE [Concomitant]
     Active Substance: ACETAMINOPHEN\CODEINE PHOSPHATE
  5. IMODIUM [Concomitant]
     Active Substance: LOPERAMIDE HYDROCHLORIDE
  6. METROPROLOL [Concomitant]
     Active Substance: METOPROLOL
  7. PERINDOPRIL [Concomitant]
     Active Substance: PERINDOPRIL

REACTIONS (7)
  - Fatigue [None]
  - Back pain [None]
  - Intestinal obstruction [None]
  - Vomiting [None]
  - Nausea [None]
  - Hyponatraemia [None]
  - Diarrhoea [None]

NARRATIVE: CASE EVENT DATE: 20200422
